FAERS Safety Report 8675921 (Version 2)
Quarter: 2012Q4

REPORT INFORMATION
  Report Type: 
  Country: FR (occurrence: FR)
  Receive Date: 20120720
  Receipt Date: 20120914
  Transmission Date: 20130627
  Serious: Yes (Other)
  Sender: FDA-Public Use
  Company Number: PHHY2012FR061836

PATIENT
  Age: 78 Year
  Sex: Female

DRUGS (6)
  1. ACLASTA [Suspect]
     Indication: OSTEOPOROSIS
     Dosage: 5 mg
     Route: 042
     Dates: start: 20120709
  2. PARACETAMOL [Concomitant]
     Indication: PROPHYLAXIS
     Dosage: UNK UKN, UNK
  3. LAMALINE [Concomitant]
     Indication: FIBROMYALGIA
     Dosage: 3 DF, daily
     Dates: start: 20120101
  4. TRAMADOL [Concomitant]
     Indication: FIBROMYALGIA
  5. DOLIPRANE [Concomitant]
     Dosage: 3 g, per day
     Route: 048
  6. DOLIPRANE [Concomitant]
     Dosage: 4 g, per day

REACTIONS (10)
  - Streptococcal infection [Unknown]
  - Aphthous stomatitis [Recovered/Resolved]
  - Atrophic glossitis [Unknown]
  - Pyrexia [Recovered/Resolved]
  - Diarrhoea [Recovered/Resolved]
  - Bone pain [Unknown]
  - Pain in jaw [Unknown]
  - Pain [Recovered/Resolved]
  - Influenza [Unknown]
  - Myalgia [Unknown]
